FAERS Safety Report 12618178 (Version 2)
Quarter: 2016Q3

REPORT INFORMATION
  Report Type: Spontaneous
  Country: US (occurrence: US)
  Receive Date: 20160803
  Receipt Date: 20160916
  Transmission Date: 20161109
  Serious: Yes (Disabling, Other)
  Sender: FDA-Public Use
  Company Number: US-BAYER-2016-145435

PATIENT
  Sex: Female

DRUGS (1)
  1. BETASERON [Suspect]
     Active Substance: INTERFERON BETA-1B
     Indication: MULTIPLE SCLEROSIS
     Dosage: UNK
     Dates: start: 2015

REACTIONS (6)
  - Memory impairment [None]
  - Sleep apnoea syndrome [None]
  - Anxiety [None]
  - Mental impairment [None]
  - Multiple sclerosis [None]
  - Disability [None]
